FAERS Safety Report 6538312-8 (Version None)
Quarter: 2010Q1

REPORT INFORMATION
  Report Type: 
  Country: None (occurrence: None)
  Receive Date: 20100112
  Receipt Date: 20100112
  Transmission Date: 20100710
  Serious: Yes (Other)
  Sender: FDA-Public Use
  Company Number: None

PATIENT
  Age: 62 Year
  Sex: Female
  Weight: 70.3075 kg

DRUGS (2)
  1. CEFDINIR [Suspect]
     Indication: BRONCHITIS
     Dosage: 300 MG TWICE DAILY PO
     Route: 048
     Dates: start: 20091228, end: 20100102
  2. CEFDINIR [Suspect]
     Indication: NASOPHARYNGITIS
     Dosage: 300 MG TWICE DAILY PO
     Route: 048
     Dates: start: 20091228, end: 20100102

REACTIONS (3)
  - DIARRHOEA [None]
  - DRUG INEFFECTIVE [None]
  - ERYTHEMA [None]
